FAERS Safety Report 11360446 (Version 1)
Quarter: 2015Q3

REPORT INFORMATION
  Report Type: Report from Study
  Country: US (occurrence: US)
  Receive Date: 20150810
  Receipt Date: 20150810
  Transmission Date: 20151125
  Serious: Yes (Hospitalization, Other)
  Sender: FDA-Public Use
  Company Number: US-ABBVIE-15K-163-1437918-00

PATIENT
  Age: 67 Year
  Sex: Male
  Weight: 64.92 kg

DRUGS (8)
  1. HUMIRA [Suspect]
     Active Substance: ADALIMUMAB
     Indication: CROHN^S DISEASE
     Route: 058
     Dates: start: 2002, end: 2004
  2. MAGNESIUM [Concomitant]
     Active Substance: MAGNESIUM
     Indication: MINERAL SUPPLEMENTATION
  3. HUMIRA [Suspect]
     Active Substance: ADALIMUMAB
     Route: 058
     Dates: start: 201406
  4. LISINOPRIL. [Concomitant]
     Active Substance: LISINOPRIL
     Indication: HYPERTENSION
  5. LOMOTIL [Concomitant]
     Active Substance: ATROPINE SULFATE\DIPHENOXYLATE HYDROCHLORIDE
     Indication: DIARRHOEA
  6. REMERON [Concomitant]
     Active Substance: MIRTAZAPINE
     Indication: DEPRESSION
  7. ZOLOFT [Concomitant]
     Active Substance: SERTRALINE HYDROCHLORIDE
     Indication: DEPRESSION
  8. OXYCODONE [Suspect]
     Active Substance: OXYCODONE
     Indication: PRODUCT USED FOR UNKNOWN INDICATION
     Route: 065

REACTIONS (20)
  - Crohn^s disease [Recovered/Resolved]
  - Carbon dioxide decreased [Unknown]
  - Respiratory failure [Recovered/Resolved]
  - Crohn^s disease [Recovering/Resolving]
  - Fatigue [Recovered/Resolved]
  - Mental status changes [Recovered/Resolved]
  - Haemoglobin decreased [Unknown]
  - Sepsis [Recovered/Resolved]
  - Overdose [Recovered/Resolved]
  - Neutrophil count increased [Unknown]
  - Flatulence [Recovered/Resolved]
  - White blood cell count increased [Unknown]
  - Palpitations [Recovered/Resolved]
  - Blood magnesium decreased [Recovering/Resolving]
  - Hypotension [Recovered/Resolved]
  - Pneumonia aspiration [Recovered/Resolved]
  - Lung infiltration [Unknown]
  - Necrotising fasciitis [Recovered/Resolved]
  - Staphylococcal infection [Recovered/Resolved]
  - Pneumonia [Recovered/Resolved]

NARRATIVE: CASE EVENT DATE: 2013
